FAERS Safety Report 8126250-9 (Version None)
Quarter: 2012Q1

REPORT INFORMATION
  Report Type: 
  Country: None (occurrence: None)
  Receive Date: 20120209
  Receipt Date: 20120208
  Transmission Date: 20120608
  Serious: Yes (Other)
  Sender: FDA-Public Use
  Company Number: PHFR2011GB05439

PATIENT
  Sex: Female
  Weight: 11 kg

DRUGS (1)
  1. VOLTAREN [Suspect]
     Dosage: 100 MG SUPPOSITORY ADMINISTERED
     Route: 054
     Dates: start: 20110915

REACTIONS (2)
  - INCORRECT DOSE ADMINISTERED [None]
  - DRUG PRESCRIBING ERROR [None]
